FAERS Safety Report 4723887-1 (Version None)
Quarter: 2005Q3

REPORT INFORMATION
  Report Type: 
  Country: None (occurrence: None)
  Receive Date: 20050721
  Receipt Date: 20050713
  Transmission Date: 20060218
  Serious: Yes (Other)
  Sender: FDA-Public Use
  Company Number: 2005062774

PATIENT
  Age: 70 Year
  Sex: Male
  Weight: 90.7194 kg

DRUGS (9)
  1. CELEBREX [Suspect]
     Indication: ARTHRITIS
     Dosage: ORAL
     Route: 048
  2. CELEBREX [Suspect]
     Indication: MUSCULOSKELETAL DISCOMFORT
     Dosage: ORAL
     Route: 048
  3. CELEBREX [Suspect]
     Indication: OSTEOARTHRITIS
     Dosage: ORAL
     Route: 048
  4. CELEBREX [Suspect]
     Indication: ROTATOR CUFF SYNDROME
     Dosage: ORAL
     Route: 048
  5. BEXTRA [Suspect]
     Indication: ARTHRITIS
     Dosage: 20 MG 920 MG, 1 IN 1 D), ORAL
     Route: 048
     Dates: end: 20050401
  6. BEXTRA [Suspect]
     Indication: MUSCULOSKELETAL DISCOMFORT
     Dosage: 20 MG 920 MG, 1 IN 1 D), ORAL
     Route: 048
     Dates: end: 20050401
  7. BEXTRA [Suspect]
     Indication: OSTEOARTHRITIS
     Dosage: 20 MG 920 MG, 1 IN 1 D), ORAL
     Route: 048
     Dates: end: 20050401
  8. BEXTRA [Suspect]
     Indication: ROTATOR CUFF SYNDROME
     Dosage: 20 MG 920 MG, 1 IN 1 D), ORAL
     Route: 048
     Dates: end: 20050401
  9. ASPIRIN [Concomitant]

REACTIONS (11)
  - ARRHYTHMIA [None]
  - BURSITIS [None]
  - CARDIAC DISORDER [None]
  - DRUG EFFECT DECREASED [None]
  - DYSPNOEA [None]
  - HEART RATE DECREASED [None]
  - HEART RATE INCREASED [None]
  - HYPERTENSION [None]
  - PACEMAKER COMPLICATION [None]
  - PAIN [None]
  - TENDONITIS [None]
